FAERS Safety Report 7519160-9 (Version None)
Quarter: 2011Q2

REPORT INFORMATION
  Report Type: 
  Country: None (occurrence: None)
  Receive Date: 20110602
  Receipt Date: 20110530
  Transmission Date: 20111010
  Serious: Yes (Hospitalization)
  Sender: FDA-Public Use
  Company Number: CA-ROCHE-779972

PATIENT
  Sex: Male
  Weight: 69.4 kg

DRUGS (5)
  1. BEVACIZUMAB [Suspect]
     Indication: GLIOBLASTOMA
     Dosage: FORM: INFUSION
     Route: 042
     Dates: start: 20110208
  2. PANTOPRAZOLE SODIUM [Concomitant]
  3. DECADRON [Concomitant]
  4. LOVENOX [Concomitant]
  5. COLACE [Concomitant]

REACTIONS (1)
  - EPILEPSY [None]
